FAERS Safety Report 11435420 (Version 1)
Quarter: 2015Q3

REPORT INFORMATION
  Report Type: Spontaneous
  Country: US (occurrence: US)
  Receive Date: 20150831
  Receipt Date: 20150831
  Transmission Date: 20151125
  Serious: No
  Sender: FDA-Public Use
  Company Number: US-PFIZER INC-2015276094

PATIENT
  Sex: Female

DRUGS (2)
  1. NITROGLYCERIN. [Suspect]
     Active Substance: NITROGLYCERIN
     Dosage: 1 DF, 1X/DAY (0.4 1 PATCH DURING DAY TIME)
  2. TORSEMIDE. [Suspect]
     Active Substance: TORSEMIDE
     Dosage: UNK
     Dates: end: 20150311

REACTIONS (2)
  - Nausea [Unknown]
  - Headache [Unknown]
